FAERS Safety Report 6073004-3 (Version None)
Quarter: 2009Q1

REPORT INFORMATION
  Report Type: 
  Country: None (occurrence: None)
  Receive Date: 20090209
  Receipt Date: 20090209
  Transmission Date: 20090719
  Serious: Yes (Hospitalization)
  Sender: FDA-Public Use
  Company Number: None

PATIENT
  Age: 71 Year
  Sex: Male

DRUGS (5)
  1. LIPITOR [Suspect]
     Dosage: ORAL; 80.0 MILLIGRAM
     Route: 048
  2. CLOPIDROGEL [Concomitant]
  3. LOPRESSOR [Concomitant]
  4. LASIX [Concomitant]
  5. ASPIRIN [Concomitant]

REACTIONS (4)
  - DYSPNOEA EXERTIONAL [None]
  - NO THERAPEUTIC RESPONSE [None]
  - RHABDOMYOLYSIS [None]
  - WEIGHT INCREASED [None]
